FAERS Safety Report 20159867 (Version 2)
Quarter: 2021Q4

REPORT INFORMATION
  Report Type: Spontaneous
  Country: DE (occurrence: DE)
  Receive Date: 20211208
  Receipt Date: 20211220
  Transmission Date: 20220303
  Serious: Yes (Hospitalization, Other)
  Sender: FDA-Public Use
  Company Number: None

PATIENT
  Age: 83 Year
  Sex: Female
  Weight: 69 kg

DRUGS (19)
  1. CITALOPRAM [Suspect]
     Active Substance: CITALOPRAM HYDROBROMIDE
     Indication: Depression
     Dosage: 20 MG, QD
     Route: 048
  2. QUETIAPINE [Suspect]
     Active Substance: QUETIAPINE
     Indication: Depression
     Dosage: 100 MG, QD
     Route: 048
     Dates: end: 20211119
  3. MIRTAZAPINE [Suspect]
     Active Substance: MIRTAZAPINE
     Indication: Depression
     Dosage: 30 MG, QD(0-0-0-2AB NOVEMBER 2021 AUF 45MG ZUR NACHT ERHOHT)
     Route: 048
  4. FUROSEMIDE [Concomitant]
     Active Substance: FUROSEMIDE
     Indication: Product used for unknown indication
     Dosage: 10 MG, QD(1/2-0-0 (BEI ODEMEN IN DEN BEINEN ZUS?TZLICH 1/2 TABLETTE EINNEHMEN)
     Route: 065
  5. ALENDRONATE SODIUM [Concomitant]
     Active Substance: ALENDRONATE SODIUM
     Indication: Product used for unknown indication
     Dosage: 70 MG, QW(1X WOCHENTLICH SAMSTAGS)
     Route: 065
  6. CLOPIDOGREL [Concomitant]
     Active Substance: CLOPIDOGREL BISULFATE
     Indication: Coronary artery disease
     Dosage: 0.5-0-0
     Route: 048
  7. PANTOPRAZOLE [Concomitant]
     Active Substance: PANTOPRAZOLE
     Indication: Product used for unknown indication
     Dosage: 40 MG, QD(2-0-0)
     Route: 065
  8. ASPIRIN [Concomitant]
     Active Substance: ASPIRIN
     Indication: Product used for unknown indication
     Dosage: 100 MG, QD
     Route: 065
  9. BRIMONIDINE [Concomitant]
     Active Substance: BRIMONIDINE TARTRATE
     Indication: Product used for unknown indication
     Dosage: 1 DRP, Q12H( 2MG/ML AUGENTROPFEN)
     Route: 065
  10. NITROGLYCERIN [Concomitant]
     Active Substance: NITROGLYCERIN
     Indication: Chest discomfort
     Dosage: UNK
     Route: 065
  11. NITROGLYCERIN [Concomitant]
     Active Substance: NITROGLYCERIN
     Indication: Prophylaxis
     Route: 065
  12. AMLODIPINE [Concomitant]
     Active Substance: AMLODIPINE BESYLATE
     Indication: Product used for unknown indication
     Dosage: 25?G/HALLE 3 TAGE WECHSELN
     Route: 062
     Dates: end: 202111
  13. VIGANTOL [Concomitant]
     Indication: Product used for unknown indication
     Dosage: 1 DOSAGE FORM, QD(1000IE VIT.D3)
     Route: 065
  14. NEBIVOLOL [Concomitant]
     Active Substance: NEBIVOLOL
     Indication: Product used for unknown indication
     Dosage: 1.25 MG, QD(1/4-0-0)
     Route: 065
  15. TIMOLOL MALEATE\TRAVOPROST [Concomitant]
     Active Substance: TIMOLOL MALEATE\TRAVOPROST
     Indication: Product used for unknown indication
     Dosage: 1 DRP, QD( 40 MIKRO/ML + 5 MG/ML AUGENTROPFEN)
     Route: 065
  16. ATORVASTATIN [Concomitant]
     Active Substance: ATORVASTATIN
     Indication: Product used for unknown indication
     Dosage: 40 MG, QD
     Route: 065
  17. BRINZO VISION [Concomitant]
     Indication: Product used for unknown indication
     Dosage: 1 DRP, Q12H(10MG/ML AUGENTROPFEN)
     Route: 065
  18. IODINE [Concomitant]
     Active Substance: IODINE
     Indication: Product used for unknown indication
     Dosage: 200 UG, QD
     Route: 065
  19. KALINOR [Concomitant]
     Indication: Product used for unknown indication
     Dosage: 600 MG, Q12H
     Route: 065

REACTIONS (16)
  - Cholestasis [Recovering/Resolving]
  - Constipation [Recovering/Resolving]
  - Chills [Recovering/Resolving]
  - Decreased appetite [Recovering/Resolving]
  - Gait disturbance [Recovering/Resolving]
  - Cholestasis [Recovering/Resolving]
  - Weight decreased [Recovering/Resolving]
  - Feeling cold [Recovering/Resolving]
  - Hepatocellular injury [Recovering/Resolving]
  - Urinary tract infection [Recovering/Resolving]
  - Hypotonia [Recovering/Resolving]
  - General physical health deterioration [Recovering/Resolving]
  - Blood pressure fluctuation [Recovering/Resolving]
  - Dry mouth [Recovering/Resolving]
  - Dry eye [Recovering/Resolving]
  - Night sweats [Not Recovered/Not Resolved]

NARRATIVE: CASE EVENT DATE: 20210101
